APPROVED DRUG PRODUCT: BLEOMYCIN SULFATE
Active Ingredient: BLEOMYCIN SULFATE
Strength: EQ 15 UNITS BASE/VIAL
Dosage Form/Route: INJECTABLE;INJECTION
Application: A065201 | Product #001
Applicant: PHARMACHEMIE BV
Approved: Dec 13, 2007 | RLD: No | RS: No | Type: DISCN